FAERS Safety Report 9421039 (Version 1)
Quarter: 2013Q3

REPORT INFORMATION
  Report Type: Report from Study
  Country: IT (occurrence: IT)
  Receive Date: 20130725
  Receipt Date: 20130725
  Transmission Date: 20140515
  Serious: Yes (Other)
  Sender: FDA-Public Use
  Company Number: IT-PFIZER INC-2013210668

PATIENT
  Age: 32 Year
  Sex: Female

DRUGS (7)
  1. OXALIPLATIN [Suspect]
     Indication: GASTRIC CANCER
     Dosage: 70 MG/M2, 60-MIN INFUSION, ON DAYS 1 AND 8, EVERY 3 WEEKS
     Route: 042
  2. DOCETAXEL [Suspect]
     Indication: GASTRIC CANCER
     Dosage: 35 MG/M2, 60-MIN INFUSION, ON DAYS 1 AND 8, EVERY 3 WEEKS
     Route: 042
  3. CAPECITABINE [Suspect]
     Indication: GASTRIC CANCER
     Dosage: 500 MG/M2, 2X/DAY, ON DAYS 2-15, EVERY 3 WEEKS
     Route: 048
  4. PREDNISONE [Concomitant]
     Indication: PREMEDICATION
     Dosage: 50 MG, 2X/DAY, SIX DOSES IN TOTAL
     Route: 048
  5. DEXAMETHASONE [Concomitant]
     Indication: PREMEDICATION
     Dosage: 12 MG, ON DAYS 1 AND 8
     Route: 042
  6. RANITIDINE [Concomitant]
     Indication: PREMEDICATION
     Dosage: 50 MG, ON DAYS 1 AND 8
     Route: 042
  7. CHLORPHENIRAMINE MALEATE [Concomitant]
     Indication: PREMEDICATION
     Dosage: 10 MG, ON DAYS 1 AND 8
     Route: 042

REACTIONS (1)
  - Angina pectoris [Recovered/Resolved]
